FAERS Safety Report 4278522-6 (Version None)
Quarter: 2004Q1

REPORT INFORMATION
  Report Type: 
  Country: None (occurrence: None)
  Receive Date: 20040121
  Receipt Date: 20040106
  Transmission Date: 20041129
  Serious: Yes (Hospitalization, Other)
  Sender: FDA-Public Use
  Company Number: USA040155858

PATIENT
  Age: 28 Year
  Sex: Female
  Weight: 106 kg

DRUGS (4)
  1. HUMALOG [Suspect]
     Indication: DIABETES MELLITUS
     Dosage: 50 U/DAY
     Dates: start: 19990101
  2. HUMALOG [Suspect]
     Indication: DIABETES MELLITUS
     Dates: start: 19960101, end: 19990101
  3. HUMULIN N [Suspect]
     Indication: DIABETES MELLITUS
     Dates: start: 19850101, end: 19960101
  4. HUMULIN R [Suspect]
     Indication: DIABETES MELLITUS
     Dates: start: 19850101, end: 19960101

REACTIONS (6)
  - BACK PAIN [None]
  - BLOOD GLUCOSE INCREASED [None]
  - DIABETES MELLITUS INADEQUATE CONTROL [None]
  - DYSSTASIA [None]
  - INTERVERTEBRAL DISC PROTRUSION [None]
  - SPONDYLOLYSIS [None]
